FAERS Safety Report 6116067-9 (Version None)
Quarter: 2009Q1

REPORT INFORMATION
  Report Type: 
  Country: None (occurrence: None)
  Receive Date: 20090314
  Receipt Date: 20081212
  Transmission Date: 20090719
  Serious: No
  Sender: FDA-Public Use
  Company Number: US-ABBOTT-08P-163-0492588-00

PATIENT
  Sex: Female
  Weight: 41.314 kg

DRUGS (5)
  1. HUMIRA [Suspect]
     Indication: CROHN'S DISEASE
     Route: 058
     Dates: start: 20081028, end: 20081029
  2. HUMIRA [Suspect]
     Route: 058
     Dates: start: 20081111, end: 20081112
  3. HUMIRA [Suspect]
     Route: 058
     Dates: start: 20081125, end: 20081210
  4. MAGNESIUM SULFATE [Concomitant]
     Indication: DRUG USE FOR UNKNOWN INDICATION
  5. PROCRIT [Concomitant]
     Indication: ANAEMIA

REACTIONS (1)
  - DIARRHOEA [None]
